FAERS Safety Report 7388226-9 (Version None)
Quarter: 2011Q1

REPORT INFORMATION
  Report Type: 
  Country: None (occurrence: None)
  Receive Date: 20110329
  Receipt Date: 20110329
  Transmission Date: 20110831
  Serious: Yes (Other)
  Sender: FDA-Public Use
  Company Number: None

PATIENT
  Sex: Female

DRUGS (1)
  1. TRILEPTAL [Suspect]
     Indication: CONVULSION
     Dosage: 600MG 1 TID BY MOUTH HAS HAD DTW SINCE 2008
     Route: 048

REACTIONS (3)
  - ROAD TRAFFIC ACCIDENT [None]
  - PRODUCT SUBSTITUTION ISSUE [None]
  - CONVULSION [None]
